FAERS Safety Report 11654009 (Version 1)
Quarter: 2015Q4

REPORT INFORMATION
  Report Type: Spontaneous
  Country: US (occurrence: US)
  Receive Date: 20151023
  Receipt Date: 20151023
  Transmission Date: 20160304
  Serious: Yes (Hospitalization, Other)
  Sender: FDA-Public Use
  Company Number: US-AMGEN-USASP2015108290

PATIENT
  Age: 84 Year
  Sex: Female
  Weight: 76.19 kg

DRUGS (82)
  1. NITROSTAT [Concomitant]
     Active Substance: NITROGLYCERIN
     Dosage: 2 DF, AS NECESSARY
     Route: 060
  2. AMLODIPINE [Concomitant]
     Active Substance: AMLODIPINE BESYLATE
     Dosage: 1 DF, QD
     Route: 048
  3. WELCHOL [Concomitant]
     Active Substance: COLESEVELAM HYDROCHLORIDE
     Dosage: 3 DF, QD
     Route: 048
  4. LEVOTHYROXINE. [Concomitant]
     Active Substance: LEVOTHYROXINE
     Dosage: 175 MUG, QD, 1 TABLET
     Route: 048
  5. FENOFIBRATE. [Concomitant]
     Active Substance: FENOFIBRATE
     Dosage: 160 MG, QD
     Route: 048
  6. LANTUS [Concomitant]
     Active Substance: INSULIN GLARGINE
     Dosage: 20 UNIT, UNK, (100 UNIT/ML)
     Route: 058
  7. WARFARIN [Concomitant]
     Active Substance: WARFARIN
     Dosage: 3 MG, QD, 1 TABLET
     Route: 048
  8. ZETIA [Concomitant]
     Active Substance: EZETIMIBE
     Dosage: 1 DF, QHS
     Route: 048
  9. POTASSIUM CHLORIDE. [Concomitant]
     Active Substance: POTASSIUM CHLORIDE
     Dosage: 2 DF, QD
     Route: 048
     Dates: start: 20150331
  10. CLOPIDOGREL [Concomitant]
     Active Substance: CLOPIDOGREL BISULFATE
     Dosage: 1 DF, QD
     Route: 048
  11. TRAMADOL. [Concomitant]
     Active Substance: TRAMADOL
     Dosage: 1 DF, AS NECESSARY
     Route: 048
  12. COMADIN [Concomitant]
  13. ATORVASTATIN [Concomitant]
     Active Substance: ATORVASTATIN
     Dosage: 40 MG, QD, (1/2 TABLET)
     Route: 048
  14. DIFLUCAN [Concomitant]
     Active Substance: FLUCONAZOLE
     Dosage: 150 MG, QD, 1 TABLET
     Route: 048
  15. FERROUS FUMARATE [Concomitant]
     Active Substance: FERROUS FUMARATE
     Dosage: 324 MG, (106 MG IRON), 1 TABLET
     Route: 048
  16. LASIX [Suspect]
     Active Substance: FUROSEMIDE
     Indication: PRODUCT USED FOR UNKNOWN INDICATION
     Dosage: 80 MG, QD, 1 TABLET
     Route: 048
  17. GABAPENTIN. [Suspect]
     Active Substance: GABAPENTIN
     Indication: NEURALGIA
     Dosage: 100 MG, QD, 1 CAPSULE
     Route: 048
  18. LEVOTHYROXINE. [Concomitant]
     Active Substance: LEVOTHYROXINE
     Dosage: 125 MCG, BID, 1 TABLET
     Route: 048
  19. HYDRALAZINE [Concomitant]
     Active Substance: HYDRALAZINE HYDROCHLORIDE
     Dosage: 50 MG, TID, 1 TABLET
     Route: 048
  20. WARFARIN [Concomitant]
     Active Substance: WARFARIN
     Dosage: 4 MG, QWK, 1 TABLET 6DAYSQW
     Route: 048
  21. VITAMIN D3 [Concomitant]
     Active Substance: CHOLECALCIFEROL
     Dosage: 2 DF, QD
     Route: 048
  22. FUROSEMIDE. [Concomitant]
     Active Substance: FUROSEMIDE
     Dosage: 40 MG, BID, 1 TABLET
     Route: 048
  23. AMOXICILLIN. [Concomitant]
     Active Substance: AMOXICILLIN
     Dosage: 4 DF, AS NECESSARY
     Route: 048
  24. BUDESONIDE. [Concomitant]
     Active Substance: BUDESONIDE
     Dosage: 0.5 MG/2ML NEB SUSPENSION
  25. COENZYME Q10 [Concomitant]
     Active Substance: UBIDECARENONE
     Dosage: 100 MG, QD, (1 TABLET)
     Route: 048
  26. DIGOXIN. [Concomitant]
     Active Substance: DIGOXIN
     Dosage: 125 MCG, QD, 1 TABLET
     Route: 048
  27. NEURONTIN [Suspect]
     Active Substance: GABAPENTIN
     Indication: NEURALGIA
     Dosage: UNK
     Route: 065
  28. LEVOTHYROXINE. [Concomitant]
     Active Substance: LEVOTHYROXINE
     Dosage: 200 MUG, 2 TIMES/WK, 1 TABLET
     Route: 048
  29. METOPROLOL TARTRATE. [Concomitant]
     Active Substance: METOPROLOL TARTRATE
     Dosage: 100 MG, QD
     Route: 048
  30. LANTUS [Concomitant]
     Active Substance: INSULIN GLARGINE
     Dosage: 30 UNIT, UNK (100 UNIT/ML)
     Route: 058
  31. LANTUS [Concomitant]
     Active Substance: INSULIN GLARGINE
     Dosage: UNK, (100 UNIT/ML)
     Route: 058
  32. FUROSEMIDE. [Concomitant]
     Active Substance: FUROSEMIDE
     Dosage: 20 MG, QD, 1 TABLET
     Route: 048
  33. FUROSEMIDE. [Concomitant]
     Active Substance: FUROSEMIDE
     Dosage: 40 MG, QD, 1 TABLET
     Route: 048
  34. COENZYME Q10 [Concomitant]
     Active Substance: UBIDECARENONE
     Dosage: 100 MG, QD, (1 CAPSULE)
     Route: 048
  35. FERROUS SULFATE W/FOLIC ACID [Concomitant]
     Dosage: UNK
     Route: 048
  36. LEVOTHYROXINE. [Concomitant]
     Active Substance: LEVOTHYROXINE
     Dosage: 125 MUG, QD, 1 CAPSULE
     Route: 048
  37. METOPROLOL TARTRATE. [Concomitant]
     Active Substance: METOPROLOL TARTRATE
     Dosage: 25 MG, QD, 1 TABLET
     Route: 048
  38. LOTRISONE [Concomitant]
     Active Substance: BETAMETHASONE DIPROPIONATE\CLOTRIMAZOLE
     Dosage: 1 % - 0.05 %, BID
     Route: 061
  39. FLONASE                            /00908302/ [Concomitant]
     Active Substance: MOMETASONE FUROATE
     Dosage: 50 MCG/ACTUATION NASAL SPRAY, SUSPENSION AND 2 SPRAY NASAL QD
     Route: 055
  40. CLOTRIMAZOLE. [Concomitant]
     Active Substance: CLOTRIMAZOLE
     Dosage: UNK
  41. FERROUS SULFATE [Concomitant]
     Active Substance: FERROUS SULFATE\FERROUS SULFATE, DRIED
     Dosage: 325 MG, TID, (65 MG IRON), 1 TABLET
     Route: 048
  42. FLEXERIL [Concomitant]
     Active Substance: CYCLOBENZAPRINE HYDROCHLORIDE
     Dosage: 10 MG, AS NECESSARY, 1 TABLET
     Route: 048
  43. VITAMIN B12 + FOLIC ACID [Concomitant]
     Dosage: 1000MCG/400MCG,
     Route: 060
  44. GABAPENTIN. [Suspect]
     Active Substance: GABAPENTIN
     Dosage: 100 MG, QD, 1 TABLET
     Route: 048
  45. LEVOTHYROXINE. [Concomitant]
     Active Substance: LEVOTHYROXINE
     Dosage: 125 MCG, QD, 1 CAPSULE
     Route: 048
  46. ISOSORBIDE MONONITRATE. [Concomitant]
     Active Substance: ISOSORBIDE MONONITRATE
     Dosage: 30 MG, QD
     Route: 048
     Dates: start: 20150818
  47. HYDRALAZINE [Concomitant]
     Active Substance: HYDRALAZINE HYDROCHLORIDE
     Dosage: 75 MG, QID (25 MG TABLET), 3 TABLET
     Route: 048
  48. METOPROLOL TARTRATE. [Concomitant]
     Active Substance: METOPROLOL TARTRATE
     Dosage: 25 MG, BID, 1 TABLET
     Route: 048
  49. LANTUS [Concomitant]
     Active Substance: INSULIN GLARGINE
     Dosage: 20 UNIT, UNK (100 UNIT/ML)
     Route: 058
  50. WARFARIN [Concomitant]
     Active Substance: WARFARIN
     Dosage: 4 MG, 5 DAYS A WEEK
     Route: 048
  51. VITAMIN D2 [Concomitant]
     Active Substance: ERGOCALCIFEROL
     Dosage: 50000 UNIT, 3 TIMES/WK
     Route: 048
  52. FUROSEMIDE. [Concomitant]
     Active Substance: FUROSEMIDE
     Dosage: 40 MG, AS NECESSARY, 1 TABLET
     Route: 048
  53. CIPRO                              /00697201/ [Concomitant]
     Active Substance: CIPROFLOXACIN
     Dosage: 250 MG, BID, (1 TABLET)
     Route: 048
  54. KLOR-CON [Concomitant]
     Active Substance: POTASSIUM CHLORIDE
     Dosage: 10 MEQ, QD, 1 TABLET
     Route: 048
  55. IPRATROPIUM BROMIDE. [Concomitant]
     Active Substance: IPRATROPIUM BROMIDE
     Dosage: UNK
  56. HYDRALAZINE [Concomitant]
     Active Substance: HYDRALAZINE HYDROCHLORIDE
     Dosage: 50 MG, QID
     Route: 048
     Dates: start: 20150818
  57. ZOFRAN [Concomitant]
     Active Substance: ONDANSETRON HYDROCHLORIDE
     Dosage: 4 MG, AS NECESSARY
     Route: 048
  58. WARFARIN [Concomitant]
     Active Substance: WARFARIN
     Dosage: 4 MG, QD, 1 TABLET
     Route: 048
  59. SYNTHROID [Concomitant]
     Active Substance: LEVOTHYROXINE SODIUM
     Dosage: 1 DF, 2 TIMES/WK
     Route: 048
  60. ACETAMINOPHEN. [Concomitant]
     Active Substance: ACETAMINOPHEN
     Dosage: 1 DF, QHS
     Route: 048
  61. HUMALOG [Concomitant]
     Active Substance: INSULIN LISPRO
     Dosage: 2 UNIT, (100 UNIT/ML), UNK
     Route: 058
  62. VITAMIN B12 [Concomitant]
     Active Substance: CYANOCOBALAMIN
     Dosage: 1 DF, QD
     Route: 048
  63. PROCRIT [Suspect]
     Active Substance: ERYTHROPOIETIN
     Indication: NEPHROGENIC ANAEMIA
     Dosage: 20000 UNIT/ML, PRN
     Route: 065
  64. LYRICA [Suspect]
     Active Substance: PREGABALIN
     Indication: NEURALGIA
     Dosage: 25 MG, QHS, 1 CAPSULE
     Route: 048
     Dates: start: 20150929
  65. METHYLPREDNISOLONE. [Concomitant]
     Active Substance: METHYLPREDNISOLONE
     Dosage: 4 MG, UNK
     Route: 048
  66. LEVOTHYROXINE. [Concomitant]
     Active Substance: LEVOTHYROXINE
     Dosage: 125 MCG, QD, CAPSULE
     Route: 048
     Dates: start: 20150818
  67. LEVOTHYROXINE. [Concomitant]
     Active Substance: LEVOTHYROXINE
     Dosage: 112 MCG, QD, 1 TABLET
     Route: 048
  68. LEVOTHYROXINE. [Concomitant]
     Active Substance: LEVOTHYROXINE
     Dosage: 125 MG, QD, 1 TABLET
     Route: 048
  69. LEVOTHYROXINE. [Concomitant]
     Active Substance: LEVOTHYROXINE
     Dosage: 150 MCG, UNK
     Route: 048
  70. HYDRALAZINE [Concomitant]
     Active Substance: HYDRALAZINE HYDROCHLORIDE
     Dosage: 50 MG, QD, 1 TABLET
     Route: 048
  71. WARFARIN [Concomitant]
     Active Substance: WARFARIN
     Dosage: 2 MG, QFRIDAY
     Route: 048
  72. STOOL SOFTENER [Concomitant]
     Active Substance: DOCUSATE CALCIUM
     Dosage: 1 DF, Q3DAYS
     Route: 048
  73. ASPIRIN                            /00002701/ [Concomitant]
     Active Substance: ASPIRIN
     Dosage: 1 DF, QD
     Route: 048
  74. NOVOLIN [Concomitant]
     Active Substance: INSULIN HUMAN
     Dosage: 70/30 (SEMI-SYNTHETIC)
     Route: 058
  75. FUROSEMIDE. [Concomitant]
     Active Substance: FUROSEMIDE
     Dosage: 40 MG, QD, 1 TABLET
     Route: 048
  76. ATORVASTATIN [Concomitant]
     Active Substance: ATORVASTATIN
     Dosage: 40 MG, QD, (1 TABLET)
     Route: 048
  77. ATORVASTATIN [Concomitant]
     Active Substance: ATORVASTATIN
     Dosage: 80 MG, QD, (1 TABLET)
     Route: 048
  78. CENTRUM SILVER                     /02363801/ [Concomitant]
     Active Substance: MINERALS\VITAMINS
     Dosage: 1 DF, QD
     Route: 048
  79. CHLORTHALIDONE. [Concomitant]
     Active Substance: CHLORTHALIDONE
     Dosage: 25 MG, QD, (1 TABLET)
     Route: 048
  80. COD LIVER OIL [Concomitant]
     Active Substance: COD LIVER OIL
     Dosage: 1 DF, QD
     Route: 048
  81. HUMALOG [Concomitant]
     Active Substance: INSULIN LISPRO
     Dosage: 5 UNIT, (100 UNIT/ML), UNK
     Route: 058
  82. NOVOLIN N [Concomitant]
     Active Substance: INSULIN HUMAN
     Dosage: 5 UNIT, UNK, (100 UNIT/ML)
     Route: 058

REACTIONS (66)
  - Atrial fibrillation [Unknown]
  - Asthenia [Unknown]
  - Arthropathy [Unknown]
  - Neuropathy peripheral [Unknown]
  - Wrist fracture [Unknown]
  - Cerebrovascular accident [Unknown]
  - Hypoaesthesia [Recovering/Resolving]
  - Dyspnoea exertional [Unknown]
  - Dyspnoea [Unknown]
  - Weight decreased [Unknown]
  - Transient ischaemic attack [Unknown]
  - Cardiac failure congestive [Unknown]
  - Pain [Unknown]
  - Confusional state [Unknown]
  - Wound [Unknown]
  - Lymphoedema [Unknown]
  - Paresis [Unknown]
  - Petechiae [Unknown]
  - Contusion [Unknown]
  - Cardiomyopathy [Unknown]
  - Osteoarthritis [Unknown]
  - Urinary incontinence [Unknown]
  - Scab [Not Recovered/Not Resolved]
  - Arteriosclerosis coronary artery [Unknown]
  - Rash [Unknown]
  - Hypersensitivity [Unknown]
  - Neuralgia [Unknown]
  - Visual impairment [Unknown]
  - Erythema [Unknown]
  - Epistaxis [Unknown]
  - Hypothyroidism [Unknown]
  - Bladder catheterisation [Unknown]
  - Anaemia [Unknown]
  - Wheelchair user [Unknown]
  - Cardiac murmur [Unknown]
  - Weight increased [Unknown]
  - Hypertension [Recovering/Resolving]
  - Pain in extremity [Unknown]
  - Type 2 diabetes mellitus [Unknown]
  - Acute kidney injury [Unknown]
  - Oedema [Recovered/Resolved]
  - Somnolence [Unknown]
  - Fall [Unknown]
  - Nocturia [Unknown]
  - Feeling abnormal [Unknown]
  - Breast cancer [Unknown]
  - Disorientation [Unknown]
  - Paraesthesia [Unknown]
  - Hypercholesterolaemia [Unknown]
  - Drug intolerance [Unknown]
  - Abscess limb [Unknown]
  - Back pain [Unknown]
  - Haemorrhage [Unknown]
  - Dizziness [Unknown]
  - Cough [Unknown]
  - Pruritus [Unknown]
  - Mastectomy [Unknown]
  - Cerebral palsy [Unknown]
  - Chronic kidney disease [Not Recovered/Not Resolved]
  - Urinary tract infection [Unknown]
  - Myocardial infarction [Unknown]
  - Dysstasia [Unknown]
  - Peripheral swelling [Unknown]
  - Fatigue [Unknown]
  - Walking aid user [Unknown]
  - Surgery [Unknown]

NARRATIVE: CASE EVENT DATE: 201203
